FAERS Safety Report 25324677 (Version 3)
Quarter: 2025Q2

REPORT INFORMATION
  Report Type: Spontaneous
  Country: US (occurrence: US)
  Receive Date: 20250516
  Receipt Date: 20250616
  Transmission Date: 20250716
  Serious: No
  Sender: PFIZER
  Company Number: US-PFIZER INC-202500041160

PATIENT
  Age: 36 Year
  Sex: Male
  Weight: 67.3 kg

DRUGS (1)
  1. ADCETRIS [Suspect]
     Active Substance: BRENTUXIMAB VEDOTIN
     Dosage: 120MG EVERY 3 WEEKS
     Route: 042

REACTIONS (1)
  - Weight decreased [Recovered/Resolved]
